FAERS Safety Report 4976633-0 (Version None)
Quarter: 2006Q2

REPORT INFORMATION
  Report Type: 
  Country: None (occurrence: None)
  Receive Date: 20060418
  Receipt Date: 20060418
  Transmission Date: 20061013
  Serious: Yes (Other)
  Sender: FDA-Public Use
  Company Number: None

PATIENT
  Age: 30 Year
  Sex: Female
  Weight: 77.1115 kg

DRUGS (2)
  1. LEXAPRO [Suspect]
     Indication: DYSPHORIA
     Dosage: 10 MG  1 TIME PER DAY  PO
     Route: 048
     Dates: start: 20040205, end: 20050205
  2. LEXAPRO [Suspect]
     Indication: PREMENSTRUAL SYNDROME
     Dosage: 20 MG   1 TIME PER DAY   PO
     Route: 048
     Dates: start: 20050505, end: 20060409

REACTIONS (10)
  - ABNORMAL DREAMS [None]
  - DIZZINESS [None]
  - DRUG WITHDRAWAL SYNDROME [None]
  - EYE MOVEMENT DISORDER [None]
  - FATIGUE [None]
  - FEELING ABNORMAL [None]
  - NAUSEA [None]
  - NERVOUS SYSTEM DISORDER [None]
  - NIGHTMARE [None]
  - SLEEP DISORDER [None]
